FAERS Safety Report 6026276-5 (Version None)
Quarter: 2008Q4

REPORT INFORMATION
  Report Type: 
  Country: None (occurrence: None)
  Receive Date: 20081230
  Receipt Date: 20081023
  Transmission Date: 20090506
  Serious: Yes (Hospitalization)
  Sender: FDA-Public Use
  Company Number: 2008AL012493

PATIENT
  Age: 82 Year
  Sex: Male

DRUGS (6)
  1. METFORMIN HCL [Suspect]
     Indication: DIABETES MELLITUS
     Dosage: PO
     Route: 048
     Dates: start: 20080301, end: 20080801
  2. ISOPTIN [Concomitant]
  3. FURIX [Concomitant]
  4. SPIRONOLACTONE [Concomitant]
  5. TROMBYL [Concomitant]
  6. ACETYLCYSTEINE [Concomitant]

REACTIONS (4)
  - ABDOMINAL DISTENSION [None]
  - BLOOD CREATININE INCREASED [None]
  - CONSTIPATION [None]
  - DYSPNOEA EXERTIONAL [None]
